FAERS Safety Report 8315510-4 (Version None)
Quarter: 2012Q2

REPORT INFORMATION
  Report Type: 
  Country: None (occurrence: None)
  Receive Date: 20120426
  Receipt Date: 20120418
  Transmission Date: 20120825
  Serious: Yes (Hospitalization)
  Sender: FDA-Public Use
  Company Number: US-ABBOTT-12P-167-0926949-00

PATIENT
  Sex: Female
  Weight: 71.44 kg

DRUGS (9)
  1. INVIRASE [Suspect]
     Indication: HIV INFECTION
     Dates: start: 19960901
  2. ASCORBIC ACID [Concomitant]
     Indication: PRODUCT USED FOR UNKNOWN INDICATION
     Dates: start: 20090101
  3. SEROQUEL [Concomitant]
     Indication: PRODUCT USED FOR UNKNOWN INDICATION
     Dates: start: 19960901
  4. PLACEBO [Suspect]
     Indication: PULMONARY ARTERIAL HYPERTENSION
     Route: 048
  5. MULTI-VITAMINS [Concomitant]
     Indication: PRODUCT USED FOR UNKNOWN INDICATION
     Dates: start: 20090101
  6. POTASSIUM CHLORIDE [Concomitant]
     Indication: PRODUCT USED FOR UNKNOWN INDICATION
     Dates: start: 20070801
  7. LETAIRIS [Concomitant]
     Indication: PRODUCT USED FOR UNKNOWN INDICATION
     Dates: start: 20070731
  8. NORVIR [Suspect]
     Indication: HIV INFECTION
     Dates: start: 19960901
  9. CICLETANINE HYDROCHLORIDE [Suspect]
     Indication: PULMONARY ARTERIAL HYPERTENSION
     Route: 048
     Dates: start: 20100503

REACTIONS (1)
  - HYPOKALAEMIA [None]
